FAERS Safety Report 4592788-4 (Version None)
Quarter: 2005Q1

REPORT INFORMATION
  Report Type: 
  Country: None (occurrence: None)
  Receive Date: 20050228
  Receipt Date: 20050217
  Transmission Date: 20050727
  Serious: Yes (Other)
  Sender: FDA-Public Use
  Company Number: JP-JNJFOC-20050204691

PATIENT
  Age: 71 Year

DRUGS (1)
  1. RISPERDAL [Suspect]
     Indication: DELIRIUM
     Route: 049

REACTIONS (1)
  - WHITE BLOOD CELL COUNT DECREASED [None]
